FAERS Safety Report 10914161 (Version 2)
Quarter: 2015Q2

REPORT INFORMATION
  Report Type: Spontaneous
  Country: US (occurrence: None)
  Receive Date: 20150310
  Receipt Date: 20150423
  Transmission Date: 20150821
  Serious: Yes (Hospitalization)
  Sender: FDA-Public Use
  Company Number: US-001749

PATIENT
  Age: 45 Year
  Sex: Male

DRUGS (2)
  1. SOLUTIONS FOR PARENTERAL NUTRITION [Concomitant]
     Active Substance: AMINO ACIDS\DEXTROSE\ELECTROLYTES NOS
  2. GATTEX [Suspect]
     Active Substance: TEDUGLUTIDE\WATER
     Indication: SHORT-BOWEL SYNDROME
     Dosage: DF
     Route: 058

REACTIONS (8)
  - Post procedural complication [None]
  - Dyspnoea [None]
  - Abdominal pain upper [None]
  - Abdominal pain [None]
  - Drug dose omission [None]
  - Dehydration [None]
  - Stoma obstruction [None]
  - Cardiac failure congestive [None]

NARRATIVE: CASE EVENT DATE: 201502
